FAERS Safety Report 8077656-8 (Version None)
Quarter: 2012Q1

REPORT INFORMATION
  Report Type: 
  Country: None (occurrence: None)
  Receive Date: 20120127
  Receipt Date: 20120119
  Transmission Date: 20120608
  Serious: Yes (Hospitalization)
  Sender: FDA-Public Use
  Company Number: NL-MEDIMMUNE-MEDI-0013924

PATIENT
  Sex: Male
  Weight: 8 kg

DRUGS (6)
  1. LEVETIRACETAM [Concomitant]
     Indication: EPILEPSY
  2. SYNAGIS [Suspect]
     Route: 030
     Dates: start: 20111109, end: 20120113
  3. SYNAGIS [Suspect]
     Indication: PREMATURE BABY
     Route: 030
     Dates: start: 20110914, end: 20111010
  4. ESOMEPRAZOLE SODIUM [Concomitant]
     Dates: start: 20110101
  5. FERROUS GLUCONATE [Concomitant]
     Dates: start: 20110101
  6. FOLIC ACID [Concomitant]
     Dates: start: 20110101

REACTIONS (4)
  - NASOPHARYNGITIS [None]
  - HYPOPHAGIA [None]
  - INFANTILE SPASMS [None]
  - EPILEPSY [None]
